FAERS Safety Report 25488164 (Version 3)
Quarter: 2025Q3

REPORT INFORMATION
  Report Type: Spontaneous
  Country: EU (occurrence: EU)
  Receive Date: 20250627
  Receipt Date: 20250918
  Transmission Date: 20251020
  Serious: Yes (Hospitalization, Other)
  Sender: BAYER HEALTHCARE PHARMACEUTICALS INC.
  Company Number: EU-BAYER-2025A084022

PATIENT
  Age: 25 Year
  Sex: Female

DRUGS (1)
  1. KYLEENA [Suspect]
     Active Substance: LEVONORGESTREL
     Dosage: 17.5?G/DAY
     Route: 015
     Dates: start: 202201, end: 20250613

REACTIONS (4)
  - Pregnancy with contraceptive device [Recovered/Resolved]
  - Hyperemesis gravidarum [None]
  - Amenorrhoea [None]
  - Drug ineffective [None]

NARRATIVE: CASE EVENT DATE: 20220101
